FAERS Safety Report 24175017 (Version 1)
Quarter: 2024Q3

REPORT INFORMATION
  Report Type: Spontaneous
  Country: GB (occurrence: GB)
  Receive Date: 20240805
  Receipt Date: 20240805
  Transmission Date: 20241016
  Serious: Yes (Hospitalization, Other)
  Sender: PFIZER
  Company Number: None

PATIENT

DRUGS (1)
  1. PAXLOVID [Suspect]
     Active Substance: NIRMATRELVIR\RITONAVIR
     Indication: COVID-19 treatment
     Dosage: UNK

REACTIONS (12)
  - Hypotension [Unknown]
  - Urinary incontinence [Unknown]
  - Circulatory collapse [Unknown]
  - Loss of consciousness [Unknown]
  - Fatigue [Unknown]
  - Dysstasia [Unknown]
  - Cold sweat [Unknown]
  - Vomiting [Unknown]
  - Dysgeusia [Unknown]
  - Tremor [Unknown]
  - Nausea [Unknown]
  - Pain in extremity [Unknown]
